FAERS Safety Report 4279277-1 (Version None)
Quarter: 2004Q1

REPORT INFORMATION
  Report Type: 
  Country: None (occurrence: None)
  Receive Date: 20040122
  Receipt Date: 20040109
  Transmission Date: 20041129
  Serious: Yes (Death, Life-Threatening, Hospitalization)
  Sender: FDA-Public Use
  Company Number: 2003036353

PATIENT
  Age: 33 Year
  Sex: Female
  Weight: 55 kg

DRUGS (2)
  1. PRODILANTIN (FOSPHENYTOIN SODIUM) [Suspect]
     Indication: CONVULSION
     Dosage: 1200 MG ONCE, INTRAVENOUS
     Route: 042
     Dates: start: 20030826, end: 20030826
  2. ALL OTHER THERAPEUTIC PRODUCTS [Concomitant]

REACTIONS (9)
  - CARDIO-RESPIRATORY ARREST [None]
  - COMA [None]
  - COORDINATION ABNORMAL [None]
  - DISSEMINATED INTRAVASCULAR COAGULATION [None]
  - ELECTROMECHANICAL DISSOCIATION [None]
  - MEDICATION ERROR [None]
  - SEPTIC SHOCK [None]
  - SINUS TACHYCARDIA [None]
  - THROMBOCYTOPENIA [None]
